FAERS Safety Report 10401693 (Version 1)
Quarter: 2014Q3

REPORT INFORMATION
  Report Type: Spontaneous
  Country: US (occurrence: None)
  Receive Date: 20140819
  Receipt Date: 20140819
  Transmission Date: 20150326
  Serious: Yes (Other)
  Sender: FDA-Public Use
  Company Number: None

PATIENT
  Age: 44 Year
  Sex: Female
  Weight: 95.26 kg

DRUGS (3)
  1. DULOXETINE [Suspect]
     Active Substance: DULOXETINE
     Indication: BACK PAIN
     Dosage: 2 PILLS
     Route: 048
     Dates: start: 20140801, end: 20140817
  2. DULOXETINE [Suspect]
     Active Substance: DULOXETINE
     Indication: NEURALGIA
     Dosage: 2 PILLS
     Route: 048
     Dates: start: 20140801, end: 20140817
  3. DULOXETINE [Suspect]
     Active Substance: DULOXETINE
     Indication: POST-TRAUMATIC STRESS DISORDER
     Dosage: 2 PILLS
     Route: 048
     Dates: start: 20140801, end: 20140817

REACTIONS (8)
  - Depression [None]
  - Headache [None]
  - Chest pain [None]
  - Product substitution issue [None]
  - Drug ineffective [None]
  - Diarrhoea [None]
  - Mental disorder [None]
  - Lethargy [None]

NARRATIVE: CASE EVENT DATE: 20140817
